FAERS Safety Report 8344064 (Version 2)
Quarter: 2012Q4

REPORT INFORMATION
  Report Type: 
  Country: US (occurrence: US)
  Receive Date: 20120119
  Receipt Date: 20121012
  Transmission Date: 20130627
  Serious: Yes (Other)
  Sender: FDA-Public Use
  Company Number: US-GLAXOSMITHKLINE-A0775982A

PATIENT
  Age: 67 Year
  Sex: Male
  Weight: 100 kg

DRUGS (1)
  1. AVANDIA [Suspect]
     Indication: TYPE 2 DIABETES MELLITUS
     Dosage: 8MG Unknown
     Route: 048
     Dates: end: 200705

REACTIONS (6)
  - Cardiac failure congestive [Not Recovered/Not Resolved]
  - Dysgraphia [Unknown]
  - Dizziness [Unknown]
  - Speech disorder [Unknown]
  - Gait disturbance [Unknown]
  - Asthenia [Unknown]
